FAERS Safety Report 4654567-9 (Version None)
Quarter: 2005Q2

REPORT INFORMATION
  Report Type: 
  Country: None (occurrence: None)
  Receive Date: 20050503
  Receipt Date: 20050503
  Transmission Date: 20051028
  Serious: Yes (Life-Threatening, Other)
  Sender: FDA-Public Use
  Company Number: None

PATIENT
  Age: 85 Year
  Sex: Female
  Weight: 43.0917 kg

DRUGS (1)
  1. ZYPREXA [Suspect]
     Dosage: ONCE PER HOU

REACTIONS (11)
  - DEPRESSION [None]
  - DIARRHOEA [None]
  - DYSPHONIA [None]
  - FAECAL INCONTINENCE [None]
  - HYPERSOMNIA [None]
  - MALNUTRITION [None]
  - MENTAL DISORDER [None]
  - OFF LABEL USE [None]
  - ORAL INTAKE REDUCED [None]
  - PERSONALITY CHANGE [None]
  - SKIN DISORDER [None]
